FAERS Safety Report 9969285 (Version 3)
Quarter: 2014Q2

REPORT INFORMATION
  Report Type: Spontaneous
  Country: US (occurrence: US)
  Receive Date: 20140306
  Receipt Date: 20140522
  Transmission Date: 20141212
  Serious: No
  Sender: FDA-Public Use
  Company Number: US-BIOGENIDEC-2014BI018292

PATIENT
  Age: 56 Year
  Sex: Female

DRUGS (10)
  1. TECFIDERA [Suspect]
     Indication: MULTIPLE SCLEROSIS
     Route: 048
  2. TECFIDERA [Suspect]
     Indication: MULTIPLE SCLEROSIS
     Route: 048
     Dates: start: 20140206
  3. ALENDRONATE SODIUM [Concomitant]
  4. AMANTADINE HCL [Concomitant]
  5. ATENOLOL [Concomitant]
  6. B COMPLEX 50 [Concomitant]
  7. LEXAPRO [Concomitant]
  8. MILK THISTLE [Concomitant]
  9. TEGRETOL-XR [Concomitant]
  10. VESICARE [Concomitant]

REACTIONS (4)
  - Dermal cyst [Unknown]
  - Skin ulcer [Not Recovered/Not Resolved]
  - Muscle spasms [Unknown]
  - Flushing [Not Recovered/Not Resolved]
